FAERS Safety Report 5202454-X (Version None)
Quarter: 2006Q4

REPORT INFORMATION
  Report Type: 
  Country: None (occurrence: None)
  Receive Date: 20061010
  Receipt Date: 20051228
  Transmission Date: 20070319
  Serious: Yes (Hospitalization)
  Sender: FDA-Public Use
  Company Number: 2006P1000006

PATIENT
  Age: 54 Year
  Sex: Male
  Weight: 72 kg

DRUGS (9)
  1. RETEPLASE (RETEPLASE) [Suspect]
     Indication: ACUTE MYOCARDIAL INFARCTION
  2. ABCIXIMAB (ABCIXIMAB) [Suspect]
     Indication: ACUTE MYOCARDIAL INFARCTION
  3. ASPIRIN [Concomitant]
  4. METOPROLOL SUCCINATE [Concomitant]
  5. SIMVASTATIN [Concomitant]
  6. TICLOPIDINE [Concomitant]
  7. BISOPROLOL FUMARATE [Concomitant]
  8. ATORVASTATIN CALCIUM [Concomitant]
  9. ENALAPRIL MALEATE [Concomitant]

REACTIONS (2)
  - MYOCARDIAL INFARCTION [None]
  - NO ADVERSE DRUG EFFECT [None]
